FAERS Safety Report 15959005 (Version 2)
Quarter: 2019Q1

REPORT INFORMATION
  Report Type: Report from Study
  Country: IT (occurrence: IT)
  Receive Date: 20190214
  Receipt Date: 20190222
  Transmission Date: 20190417
  Serious: Yes (Other)
  Sender: FDA-Public Use
  Company Number: IT-AUROBINDO-AUR-APL-2019-007845

PATIENT

DRUGS (6)
  1. OXALIPLATIN SOLUTION FOR INFUSION [Suspect]
     Active Substance: OXALIPLATIN
     Indication: OVARIAN EPITHELIAL CANCER
  2. FOLINIC ACID [Suspect]
     Active Substance: LEUCOVORIN
     Indication: SALVAGE THERAPY
  3. OXALIPLATIN SOLUTION FOR INFUSION [Suspect]
     Active Substance: OXALIPLATIN
     Indication: SALVAGE THERAPY
     Dosage: 85 MILLIGRAM/SQ. METER, 2 HOUR INFUSION ON DAY 1; EVERY THREE WEEKS
     Route: 042
  4. FOLINIC ACID [Suspect]
     Active Substance: LEUCOVORIN
     Indication: OVARIAN EPITHELIAL CANCER
     Dosage: 200 MILLIGRAM/SQ. METER, 2 HOUR INFUSION ON DAY 1; EVERY THREE WEEKS
     Route: 042
  5. FLUOROURACIL. [Suspect]
     Active Substance: FLUOROURACIL
     Indication: OVARIAN EPITHELIAL CANCER
     Dosage: 400 MILLIGRAM/SQ. METER, BOLUS ON DAY 1; EVERY THREE WEEKS
     Route: 040
  6. FLUOROURACIL. [Suspect]
     Active Substance: FLUOROURACIL
     Indication: SALVAGE THERAPY
     Dosage: 600 MILLIGRAM/SQ. METER, 22 HOUR INFUSION FOR TWO CONSECUTIVE DAYS, EVERY THREE WEEKS
     Route: 042

REACTIONS (1)
  - Neurotoxicity [Unknown]
